FAERS Safety Report 6331639-4 (Version None)
Quarter: 2009Q3

REPORT INFORMATION
  Report Type: 
  Country: None (occurrence: None)
  Receive Date: 20090827
  Receipt Date: 20090819
  Transmission Date: 20100115
  Serious: Yes (Other)
  Sender: FDA-Public Use
  Company Number: PHHY2009MX13792

PATIENT
  Sex: Female

DRUGS (3)
  1. DIOVAN [Suspect]
     Indication: HYPERTENSION
     Dosage: 1 TABLET (80 MG) PER DAY
     Route: 048
     Dates: start: 20040101
  2. DIOVAN [Suspect]
     Dosage: 2 TABLETS PER DAY
  3. CAPTOPRIL [Concomitant]
     Dosage: UNK

REACTIONS (4)
  - HYPERTENSION [None]
  - PHLEBECTOMY [None]
  - THROMBOSIS [None]
  - VASCULAR CAUTERISATION [None]
